FAERS Safety Report 9107412 (Version 1)
Quarter: 2013Q1

REPORT INFORMATION
  Report Type: Spontaneous
  Country: US (occurrence: US)
  Receive Date: 20130221
  Receipt Date: 20130221
  Transmission Date: 20140127
  Serious: No
  Sender: FDA-Public Use
  Company Number: US-PFIZER INC-2013062176

PATIENT
  Sex: Female

DRUGS (1)
  1. PREMARIN VAGINAL CREAM [Suspect]
     Dosage: UNK
     Route: 067

REACTIONS (3)
  - Drug ineffective [Unknown]
  - Vulvovaginal dryness [Unknown]
  - Nasopharyngitis [Unknown]
